FAERS Safety Report 17545280 (Version 1)
Quarter: 2020Q1

REPORT INFORMATION
  Report Type: Spontaneous
  Country: ES (occurrence: ES)
  Receive Date: 20200316
  Receipt Date: 20200316
  Transmission Date: 20200409
  Serious: Yes (Hospitalization, Other)
  Sender: FDA-Public Use
  Company Number: ES-MYLANLABS-2020M1026432

PATIENT
  Age: 53 Year
  Sex: Female

DRUGS (10)
  1. RALTEGRAVIR. [Suspect]
     Active Substance: RALTEGRAVIR
     Indication: ANTIRETROVIRAL THERAPY
     Dosage: 400 MILLIGRAM, BID
  2. BOSENTAN. [Suspect]
     Active Substance: BOSENTAN
     Indication: ANTIRETROVIRAL THERAPY
     Dosage: 125 MILLIGRAM, QD
     Dates: start: 201801
  3. TADALAFIL. [Suspect]
     Active Substance: TADALAFIL
     Indication: PULMONARY ARTERIAL HYPERTENSION
     Dosage: 20 MG ONCE DAILY
     Dates: start: 201801
  4. RILPIVIRINE [Concomitant]
     Active Substance: RILPIVIRINE
     Indication: ANTIRETROVIRAL THERAPY
     Dosage: 25 MG, QD
     Dates: start: 201801, end: 201804
  5. GLECAPREVIR;PIBRENTASVIR [Concomitant]
     Active Substance: GLECAPREVIR\PIBRENTASVIR
     Indication: HEPATITIS C
     Dosage: UNK
  6. BOSENTAN. [Interacting]
     Active Substance: BOSENTAN
     Dosage: 125 MG, BID
     Dates: start: 201804, end: 201809
  7. COBICISTAT W/DARUNAVIR [Interacting]
     Active Substance: COBICISTAT\DARUNAVIR ETHANOLATE
     Indication: ANTIRETROVIRAL THERAPY
     Dosage: 800/150 MG, QD
     Dates: start: 201804, end: 201809
  8. RALTEGRAVIR. [Suspect]
     Active Substance: RALTEGRAVIR
     Dosage: 400 MILLIGRAM, QD (400 MG TWICE DAILY)
     Dates: start: 201801
  9. TADALAFIL. [Suspect]
     Active Substance: TADALAFIL
     Dosage: 20 MILLIGRAM, QD
     Dates: start: 201804
  10. LOPINAVIR/RITONAVIR [Suspect]
     Active Substance: LOPINAVIR\RITONAVIR
     Indication: ANTIRETROVIRAL THERAPY
     Dosage: UNK, BID (400/100 MG TWICE DAILY)
     Dates: start: 201801

REACTIONS (10)
  - Respiratory failure [Recovering/Resolving]
  - Cardiac failure [Recovering/Resolving]
  - Drug interaction [Unknown]
  - Toxicity to various agents [Recovered/Resolved]
  - Overdose [Unknown]
  - Gene mutation [Recovered/Resolved]
  - Cardiac failure congestive [Recovered/Resolved]
  - Drug abuse [Unknown]
  - Virologic failure [Recovering/Resolving]
  - Fluid retention [Recovering/Resolving]

NARRATIVE: CASE EVENT DATE: 201804
